FAERS Safety Report 13754224 (Version 2)
Quarter: 2017Q3

REPORT INFORMATION
  Report Type: Report from Study
  Country: US (occurrence: US)
  Receive Date: 20170714
  Receipt Date: 20170719
  Transmission Date: 20171127
  Serious: Yes (Hospitalization, Other)
  Sender: FDA-Public Use
  Company Number: US-ELI_LILLY_AND_COMPANY-US201705008288

PATIENT
  Age: 65 Year
  Sex: Female

DRUGS (5)
  1. TERIPARATIDE [Suspect]
     Active Substance: TERIPARATIDE
     Dosage: 20 UG, UNKNOWN
     Route: 058
     Dates: start: 20161121, end: 201704
  2. TERIPARATIDE [Suspect]
     Active Substance: TERIPARATIDE
     Indication: OSTEOPOROSIS
     Dosage: 20 UG, UNKNOWN
     Route: 058
     Dates: start: 20150303, end: 20151221
  3. NAPROSYN [Suspect]
     Active Substance: NAPROXEN
     Indication: MIGRAINE
     Dosage: UNK UNK, PRN
     Route: 065
  4. TERIPARATIDE [Suspect]
     Active Substance: TERIPARATIDE
     Dosage: 20 UG, UNKNOWN
     Route: 058
     Dates: start: 20170610
  5. BETAFERON [Suspect]
     Active Substance: INTERFERON BETA-1B
     Indication: MULTIPLE SCLEROSIS
     Dosage: UNK UNK, UNKNOWN
     Route: 065

REACTIONS (9)
  - Gastrointestinal haemorrhage [Unknown]
  - Hip fracture [Recovered/Resolved]
  - Glioma [Recovered/Resolved]
  - C-reactive protein increased [Not Recovered/Not Resolved]
  - Haemoglobin decreased [Recovered/Resolved]
  - Cellulitis [Not Recovered/Not Resolved]
  - Fall [Unknown]
  - Blood iron decreased [Recovered/Resolved]
  - Blood calcium increased [Not Recovered/Not Resolved]

NARRATIVE: CASE EVENT DATE: 201609
